FAERS Safety Report 5451234-9 (Version None)
Quarter: 2007Q3

REPORT INFORMATION
  Report Type: 
  Country: None (occurrence: None)
  Receive Date: 20070913
  Receipt Date: 20070904
  Transmission Date: 20080115
  Serious: Yes (Hospitalization, Other)
  Sender: FDA-Public Use
  Company Number: US-JNJFOC-20070900943

PATIENT
  Sex: Female
  Weight: 59.88 kg

DRUGS (1)
  1. REMICADE [Suspect]
     Indication: COLITIS ULCERATIVE
     Route: 042

REACTIONS (5)
  - ANXIETY [None]
  - COLITIS ULCERATIVE [None]
  - DISTURBANCE IN ATTENTION [None]
  - NERVOUSNESS [None]
  - PALPITATIONS [None]
